FAERS Safety Report 7668928-7 (Version None)
Quarter: 2011Q3

REPORT INFORMATION
  Report Type: 
  Country: None (occurrence: None)
  Receive Date: 20110808
  Receipt Date: 20110719
  Transmission Date: 20111222
  Serious: Yes (Hospitalization)
  Sender: FDA-Public Use
  Company Number: US-GLAXOSMITHKLINE-A0893269A

PATIENT
  Sex: Female
  Weight: 89.5 kg

DRUGS (5)
  1. INSULIN [Concomitant]
  2. NORVASC [Concomitant]
  3. DIOVAN [Concomitant]
  4. AVANDIA [Suspect]
     Indication: DIABETES MELLITUS
     Dosage: 8MG PER DAY
     Route: 048
  5. GLUCOPHAGE [Concomitant]

REACTIONS (5)
  - CORONARY ARTERY DISEASE [None]
  - ISCHAEMIC STROKE [None]
  - CARDIOVASCULAR DISORDER [None]
  - ANGINA PECTORIS [None]
  - TRANSIENT ISCHAEMIC ATTACK [None]
